FAERS Safety Report 14500252 (Version 1)
Quarter: 2018Q1

REPORT INFORMATION
  Report Type: Report from Study
  Country: US (occurrence: US)
  Receive Date: 20180207
  Receipt Date: 20180207
  Transmission Date: 20180509
  Serious: Yes (Hospitalization)
  Sender: FDA-Public Use
  Company Number: US-BAUSCH-BL-2018-003207

PATIENT
  Age: 57 Year
  Sex: Male

DRUGS (1)
  1. XENAZINE [Suspect]
     Active Substance: TETRABENAZINE
     Indication: HUNTINGTON^S DISEASE
     Dosage: 25MG 2 TABLETS DAILY
     Route: 048
     Dates: start: 20130405, end: 2018

REACTIONS (2)
  - Pneumonia [Unknown]
  - Mental status changes [Unknown]

NARRATIVE: CASE EVENT DATE: 20180106
